FAERS Safety Report 23302388 (Version 7)
Quarter: 2024Q4

REPORT INFORMATION
  Report Type: Spontaneous
  Country: US (occurrence: US)
  Receive Date: 20231215
  Receipt Date: 20241113
  Transmission Date: 20250114
  Serious: Yes (Hospitalization, Other)
  Sender: PFIZER
  Company Number: US-PFIZER INC-PV202300197180

PATIENT
  Age: 60 Year
  Sex: Female
  Weight: 65.76 kg

DRUGS (8)
  1. IBRANCE [Suspect]
     Active Substance: PALBOCICLIB
     Indication: Hormone receptor positive HER2 negative breast cancer
     Dosage: 21 DAYS ON AND 14 DAYS OFF
     Route: 048
     Dates: start: 201902, end: 202312
  2. LETROZOLE [Suspect]
     Active Substance: LETROZOLE
     Indication: Hormone receptor positive HER2 negative breast cancer
     Dosage: 2.5 MG, 1X/DAY
     Route: 048
     Dates: start: 2019, end: 202312
  3. XGEVA [Suspect]
     Active Substance: DENOSUMAB
     Indication: Metastasis
     Dosage: 120 MG, MONTHLY
     Route: 058
     Dates: start: 201903, end: 202103
  4. XGEVA [Suspect]
     Active Substance: DENOSUMAB
     Dosage: 120 MG, EVERY 3 MONTHS
     Route: 058
     Dates: start: 202103, end: 202302
  5. ELIQUIS [Concomitant]
     Active Substance: APIXABAN
     Indication: Deep vein thrombosis
     Dosage: 2.5 MG, 2X/DAY
     Dates: start: 2022
  6. MIRTAZAPINE [Concomitant]
     Active Substance: MIRTAZAPINE
     Indication: Sleep disorder
     Dosage: 15 MG NIGHTLY (GHS)
  7. MIRTAZAPINE [Concomitant]
     Active Substance: MIRTAZAPINE
     Indication: Appetite disorder
  8. CELEBREX [Concomitant]
     Active Substance: CELECOXIB
     Indication: Pain
     Dosage: PM: APPROX 2X/WEEK

REACTIONS (4)
  - Femur fracture [Recovered/Resolved]
  - Neoplasm progression [Not Recovered/Not Resolved]
  - Neutrophil count decreased [Recovered/Resolved]
  - Off label use [Unknown]

NARRATIVE: CASE EVENT DATE: 20190101
